FAERS Safety Report 10461228 (Version 2)
Quarter: 2014Q4

REPORT INFORMATION
  Report Type: Spontaneous
  Country: JP (occurrence: None)
  Receive Date: 20140916
  Receipt Date: 20141027
  Transmission Date: 20150528
  Serious: No
  Sender: FDA-Public Use
  Company Number: INC-14-000227

PATIENT
  Age: 83 Year
  Sex: Male
  Weight: 44.3 kg

DRUGS (9)
  1. PREDNISOLONE. [Concomitant]
     Active Substance: PREDNISOLONE
  2. PREDNISOLONE. [Concomitant]
     Active Substance: PREDNISOLONE
  3. REBAMIPIDE [Concomitant]
     Active Substance: REBAMIPIDE
  4. FUROSEMIDE (FUROSEMIDE) [Concomitant]
     Active Substance: FUROSEMIDE
  5. PARIET (RABEPRAZOLE SODIUM) (20 MG, GASTRO-RESISTANT TABLET) (RABEPRAZOLE SODIUM) [Concomitant]
     Active Substance: RABEPRAZOLE SODIUM
  6. CRAVIT (LEVOFLOXACIN 0.5%) [Suspect]
     Active Substance: LEVOFLOXACIN
     Indication: CONJUNCTIVITIS ALLERGIC
     Route: 061
     Dates: start: 20140823, end: 20140823
  7. LIVOSTIN [Suspect]
     Active Substance: LEVOCABASTINE HYDROCHLORIDE
     Route: 061
     Dates: start: 20140823, end: 20140823
  8. LOXONIN (LOXOPROFEN SODIUM) [Concomitant]
     Active Substance: LOXOPROFEN SODIUM
  9. FUROSEMIDE. [Concomitant]
     Active Substance: FUROSEMIDE

REACTIONS (1)
  - Palpitations [None]

NARRATIVE: CASE EVENT DATE: 20140908
